FAERS Safety Report 13579181 (Version 1)
Quarter: 2017Q2

REPORT INFORMATION
  Report Type: Spontaneous
  Country: US (occurrence: US)
  Receive Date: 20170524
  Receipt Date: 20170524
  Transmission Date: 20170830
  Serious: No
  Sender: FDA-Public Use
  Company Number: None

PATIENT
  Age: 62 Year
  Sex: Female

DRUGS (1)
  1. HUMIRA [Suspect]
     Active Substance: ADALIMUMAB
     Indication: RHEUMATOID ARTHRITIS
     Dosage: 40MG 2 PENS ON DAY 1 THEN 40MG ON DAY 8, 40MG ON DAY 22 SUBCUTANEOUSLY
     Route: 058
     Dates: start: 20170427, end: 20170523

REACTIONS (1)
  - Oedema [None]

NARRATIVE: CASE EVENT DATE: 20170523
